FAERS Safety Report 7575039-8 (Version None)
Quarter: 2011Q2

REPORT INFORMATION
  Report Type: 
  Country: None (occurrence: None)
  Receive Date: 20110627
  Receipt Date: 20110616
  Transmission Date: 20111010
  Serious: Yes (Disabling)
  Sender: FDA-Public Use
  Company Number: US-ASTRAZENECA-2011SE37003

PATIENT
  Age: 60 Year
  Sex: Female

DRUGS (7)
  1. ULTRAM [Concomitant]
  2. XANAX [Concomitant]
  3. SYMBICORT [Suspect]
     Dosage: 160/4.5 UNKNOWN
     Route: 055
  4. FLEXERIL [Concomitant]
  5. AMBIEN [Concomitant]
  6. SPIRIVA [Concomitant]
  7. CYMBALTA [Concomitant]

REACTIONS (6)
  - DISABILITY [None]
  - CHRONIC OBSTRUCTIVE PULMONARY DISEASE [None]
  - EMPHYSEMA [None]
  - PAIN [None]
  - FIBROMYALGIA [None]
  - NERVOUSNESS [None]
